FAERS Safety Report 6419333-2 (Version None)
Quarter: 2009Q4

REPORT INFORMATION
  Report Type: 
  Country: None (occurrence: None)
  Receive Date: 20091029
  Receipt Date: 20091023
  Transmission Date: 20100525
  Serious: Yes (Hospitalization)
  Sender: FDA-Public Use
  Company Number: JP-ELI_LILLY_AND_COMPANY-JP200708006604

PATIENT
  Sex: Male
  Weight: 49 kg

DRUGS (2)
  1. HUMALOG [Suspect]
     Indication: LATENT AUTOIMMUNE DIABETES IN ADULTS
     Dosage: 8 IU, 3/D
     Route: 058
     Dates: start: 20070719, end: 20070828
  2. HUMACART NPH [Suspect]
     Indication: LATENT AUTOIMMUNE DIABETES IN ADULTS
     Dosage: 8 IU, DAILY (1/D)
     Route: 058
     Dates: start: 20070719, end: 20070828

REACTIONS (9)
  - ALANINE AMINOTRANSFERASE INCREASED [None]
  - ASPARTATE AMINOTRANSFERASE INCREASED [None]
  - BLOOD ALKALINE PHOSPHATASE INCREASED [None]
  - BLOOD LACTATE DEHYDROGENASE INCREASED [None]
  - GLYCOGEN STORAGE DISORDER [None]
  - HEPATOMEGALY [None]
  - HYPERGLYCAEMIA [None]
  - LIVER DISORDER [None]
  - WHITE BLOOD CELL COUNT DECREASED [None]
